FAERS Safety Report 21335836 (Version 1)
Quarter: 2022Q3

REPORT INFORMATION
  Report Type: Spontaneous
  Country: TN (occurrence: TN)
  Receive Date: 20220915
  Receipt Date: 20220915
  Transmission Date: 20221027
  Serious: Yes (Other)
  Sender: FDA-Public Use
  Company Number: TN-ALKEM LABORATORIES LIMITED-TN-ALKEM-2022-09600

PATIENT

DRUGS (1)
  1. TRIAMCINOLONE ACETONIDE [Suspect]
     Active Substance: TRIAMCINOLONE ACETONIDE
     Indication: Vernal keratoconjunctivitis
     Dosage: 20 MILLIGRAM (SUPRATARSAL INJECTION)
     Route: 065

REACTIONS (1)
  - Ocular hypertension [Recovering/Resolving]
